FAERS Safety Report 20857650 (Version 1)
Quarter: 2022Q2

REPORT INFORMATION
  Report Type: Spontaneous
  Country: US (occurrence: US)
  Receive Date: 20220521
  Receipt Date: 20220521
  Transmission Date: 20220721
  Serious: No
  Sender: FDA-Public Use
  Company Number: US-BRISTOL-MYERS SQUIBB COMPANY-2022-018611

PATIENT
  Age: 68 Year
  Sex: Female

DRUGS (1)
  1. REBLOZYL [Suspect]
     Active Substance: LUSPATERCEPT-AAMT
     Indication: Myelodysplastic syndrome
     Route: 058
     Dates: start: 20200201

REACTIONS (7)
  - Dizziness [Unknown]
  - Dyspnoea [Unknown]
  - Gingival disorder [Unknown]
  - Pallor [Unknown]
  - Eye disorder [Unknown]
  - Remission not achieved [Unknown]
  - Intentional product use issue [Unknown]
